FAERS Safety Report 18467476 (Version 1)
Quarter: 2020Q4

REPORT INFORMATION
  Report Type: Spontaneous
  Country: GB (occurrence: GB)
  Receive Date: 20201105
  Receipt Date: 20201105
  Transmission Date: 20210114
  Serious: Yes (Hospitalization, Disabling, Other)
  Sender: FDA-Public Use
  Company Number: GB-TEVA-2020-GB-1844852

PATIENT
  Age: 54 Year
  Sex: Female
  Weight: 67 kg

DRUGS (48)
  1. ENOXAPARIN [Concomitant]
     Active Substance: ENOXAPARIN
  2. DAPTOMYCIN. [Concomitant]
     Active Substance: DAPTOMYCIN
  3. ACICLOVIR [Concomitant]
     Active Substance: ACYCLOVIR
  4. SIROLIMUS. [Concomitant]
     Active Substance: SIROLIMUS
  5. OXYCODONE [Concomitant]
     Active Substance: OXYCODONE
  6. COTRIMOXAZOLE [Concomitant]
     Active Substance: SULFAMETHOXAZOLE\TRIMETHOPRIM
  7. LAXIDO [Concomitant]
     Active Substance: POLYETHYLENE GLYCOL 3350\POTASSIUM CHLORIDE\SODIUM BICARBONATE\SODIUM CHLORIDE
  8. METHOTREXATE. [Concomitant]
     Active Substance: METHOTREXATE
  9. PARACETAMOL [Concomitant]
     Active Substance: ACETAMINOPHEN
  10. EPOETIN BETA [Concomitant]
     Active Substance: ERYTHROPOIETIN
  11. ALPHA-TOCOPHEROL [Concomitant]
     Active Substance: .ALPHA.-TOCOPHEROL
  12. LETERMOVIR [Concomitant]
     Active Substance: LETERMOVIR
  13. LEVOMEPROMAZINE [Concomitant]
     Active Substance: LEVOMEPROMAZINE
  14. CHLORPHENAMINE [Concomitant]
     Active Substance: CHLORPHENIRAMINE MALEATE
  15. TEICOPLANIN [Concomitant]
     Active Substance: TEICOPLANIN
  16. CLENIL MODULITE [Concomitant]
     Active Substance: BECLOMETHASONE DIPROPIONATE
  17. PABRINEX [Concomitant]
     Active Substance: ASCORBIC ACID\VITAMIN B COMPLEX
  18. DIPEPTIVEN [Concomitant]
     Active Substance: ALANYL GLUTAMINE
  19. URSODEOXYCHOLIC ACID [Concomitant]
     Active Substance: URSODIOL
  20. NOREPINEPHRINE. [Concomitant]
     Active Substance: NOREPINEPHRINE
  21. CIPROFLOXACIN. [Concomitant]
     Active Substance: CIPROFLOXACIN
  22. OXETACAINE [Concomitant]
     Active Substance: OXETHAZAINE
  23. AMIKACIN. [Concomitant]
     Active Substance: AMIKACIN
  24. FLUDARABINE [Suspect]
     Active Substance: FLUDARABINE PHOSPHATE
     Dosage: 65MG
     Route: 042
     Dates: start: 20200702, end: 20200704
  25. ISAVUCONAZOLE [Concomitant]
     Active Substance: ISAVUCONAZOLE
  26. ADCAL-D3 [Concomitant]
     Active Substance: CALCIUM CARBONATE\CHOLECALCIFEROL
  27. ALLOPURINOL. [Concomitant]
     Active Substance: ALLOPURINOL
  28. LEVOTHYROXINE SODIUM. [Concomitant]
     Active Substance: LEVOTHYROXINE SODIUM
  29. CLONAZEPAM. [Concomitant]
     Active Substance: CLONAZEPAM
  30. LINEZOLID. [Concomitant]
     Active Substance: LINEZOLID
  31. ALFENTANIL. [Concomitant]
     Active Substance: ALFENTANIL
  32. MYCOPHENOLATE MOFETIL. [Concomitant]
     Active Substance: MYCOPHENOLATE MOFETIL
  33. OMEPRAZOLE. [Concomitant]
     Active Substance: OMEPRAZOLE
  34. VANCOMYCIN [Concomitant]
     Active Substance: VANCOMYCIN
  35. FOLIC ACID. [Concomitant]
     Active Substance: FOLIC ACID
  36. THIOTEPA. [Concomitant]
     Active Substance: THIOTEPA
  37. ALEMTUZUMAB [Concomitant]
     Active Substance: ALEMTUZUMAB
  38. ONDANSETRON [Concomitant]
     Active Substance: ONDANSETRON
  39. BUSULFAN. [Concomitant]
     Active Substance: BUSULFAN
  40. CALCIUM FOLINATE [Concomitant]
     Active Substance: LEUCOVORIN CALCIUM
  41. MEROPENEM. [Concomitant]
     Active Substance: MEROPENEM
  42. LOPERAMIDE [Concomitant]
     Active Substance: LOPERAMIDE
  43. TAZOCIN [Concomitant]
     Active Substance: PIPERACILLIN SODIUM\TAZOBACTAM SODIUM
  44. NYSTATIN. [Concomitant]
     Active Substance: NYSTATIN
  45. FILGRASTIM [Concomitant]
     Active Substance: FILGRASTIM
  46. HYDROCORTISONE. [Concomitant]
     Active Substance: HYDROCORTISONE
  47. DOCUSATE [Concomitant]
     Active Substance: DOCUSATE
  48. METOCLOPRAMIDE. [Concomitant]
     Active Substance: METOCLOPRAMIDE

REACTIONS (5)
  - Blindness cortical [Not Recovered/Not Resolved]
  - Cognitive disorder [Not Recovered/Not Resolved]
  - Confusional state [Unknown]
  - Toxic leukoencephalopathy [Unknown]
  - Agitation [Unknown]

NARRATIVE: CASE EVENT DATE: 20200802
